FAERS Safety Report 12837076 (Version 2)
Quarter: 2016Q4

REPORT INFORMATION
  Report Type: Report from Study
  Country: CA (occurrence: CA)
  Receive Date: 20161011
  Receipt Date: 20161101
  Transmission Date: 20170207
  Serious: Yes (Death, Hospitalization)
  Sender: FDA-Public Use
  Company Number: PHHY2015CA123090

PATIENT
  Age: 43 Year
  Sex: Male

DRUGS (4)
  1. SANDOSTATIN LAR DEPOT [Suspect]
     Active Substance: OCTREOTIDE ACETATE
     Dosage: 60 MG, BIW (EVERY 2 WEEKS)
     Route: 030
     Dates: start: 20160728
  2. SANDOSTATIN [Suspect]
     Active Substance: OCTREOTIDE ACETATE
     Indication: NEUROENDOCRINE TUMOUR
     Dosage: 100 UG, TEST DOSE ONCE/SINGLE
     Route: 058
     Dates: start: 20150807, end: 20150807
  3. SANDOSTATIN LAR DEPOT [Suspect]
     Active Substance: OCTREOTIDE ACETATE
     Indication: NEUROENDOCRINE TUMOUR
     Dosage: 30 MG, QMO (EVERY 4 WEEKS)
     Route: 030
     Dates: start: 20150826, end: 20160307
  4. SANDOSTATIN LAR DEPOT [Suspect]
     Active Substance: OCTREOTIDE ACETATE
     Dosage: 60 MG, QMO (EVERY 4 WEEKS)
     Route: 030
     Dates: start: 20160405, end: 20160713

REACTIONS (8)
  - Malaise [Unknown]
  - Abdominal pain [Unknown]
  - Product use issue [Unknown]
  - Insomnia [Recovering/Resolving]
  - Blood calcium decreased [Recovering/Resolving]
  - Decreased appetite [Unknown]
  - Death [Fatal]
  - Delirium [Recovering/Resolving]

NARRATIVE: CASE EVENT DATE: 201512
